FAERS Safety Report 8376405-3 (Version None)
Quarter: 2012Q2

REPORT INFORMATION
  Report Type: 
  Country: None (occurrence: None)
  Receive Date: 20120522
  Receipt Date: 20120518
  Transmission Date: 20120825
  Serious: Yes (Death, Hospitalization, Other)
  Sender: FDA-Public Use
  Company Number: PHHY2012AR043338

PATIENT
  Sex: Male

DRUGS (1)
  1. TRILEPTAL [Suspect]
     Indication: EPILEPSY
     Dosage: 2 TABLETS DAILY
     Route: 048
     Dates: start: 20100101, end: 20110101

REACTIONS (6)
  - ARRHYTHMIA [None]
  - SYNCOPE [None]
  - PNEUMONIA [None]
  - CONVULSION [None]
  - HYPONATRAEMIA [None]
  - BRAIN NEOPLASM [None]
